FAERS Safety Report 15218868 (Version 1)
Quarter: 2018Q3

REPORT INFORMATION
  Report Type: Spontaneous
  Country: JP (occurrence: JP)
  Receive Date: 20180731
  Receipt Date: 20180731
  Transmission Date: 20181010
  Serious: Yes (Other)
  Sender: FDA-Public Use
  Company Number: JP-BRISTOL-MYERS SQUIBB COMPANY-BMS-2018-070419

PATIENT
  Sex: Male

DRUGS (2)
  1. URSO [Concomitant]
     Active Substance: URSODIOL
     Indication: HEPATITIS B
     Route: 065
  2. BARACLUDE [Suspect]
     Active Substance: ENTECAVIR
     Indication: HEPATITIS B
     Dosage: UNK
     Route: 048

REACTIONS (1)
  - Hepatic cancer [Unknown]
